FAERS Safety Report 16003638 (Version 2)
Quarter: 2019Q3

REPORT INFORMATION
  Report Type: Report from Study
  Country: DE (occurrence: DE)
  Receive Date: 20190226
  Receipt Date: 20190823
  Transmission Date: 20191004
  Serious: Yes (Death)
  Sender: FDA-Public Use
  Company Number: DE-UCBSA-2018049277

PATIENT
  Sex: Female

DRUGS (1)
  1. CERTOLIZUMAB PEGOL [Suspect]
     Active Substance: CERTOLIZUMAB PEGOL
     Indication: RHEUMATOID ARTHRITIS
     Dosage: 200 MG
     Dates: start: 201711, end: 201803

REACTIONS (2)
  - Arrhythmia [Fatal]
  - Febrile infection [Fatal]

NARRATIVE: CASE EVENT DATE: 20180330
